FAERS Safety Report 21446889 (Version 17)
Quarter: 2024Q3

REPORT INFORMATION
  Report Type: Spontaneous
  Country: US (occurrence: US)
  Receive Date: 20221012
  Receipt Date: 20240906
  Transmission Date: 20241016
  Serious: Yes (Hospitalization, Other)
  Sender: PFIZER
  Company Number: US-PFIZER INC-PV202200080750

PATIENT
  Age: 64 Year
  Sex: Female
  Weight: 70.31 kg

DRUGS (7)
  1. IBRANCE [Suspect]
     Active Substance: PALBOCICLIB
     Indication: Breast cancer metastatic
     Dosage: 125 MG
     Route: 048
  2. IBRANCE [Suspect]
     Active Substance: PALBOCICLIB
     Dosage: 100 MG, DAILY
     Route: 048
     Dates: end: 20211126
  3. IBRANCE [Suspect]
     Active Substance: PALBOCICLIB
     Dosage: 100 MG, CYCLIC (ONCE A DAY IN EVENING AT BEDTIME THREE WEEKS, THEN OFF A WEEK)
     Route: 048
     Dates: start: 20211226, end: 2023
  4. IBRANCE [Suspect]
     Active Substance: PALBOCICLIB
     Dosage: 100 MG, 1X/DAY
     Route: 048
  5. IBRANCE [Suspect]
     Active Substance: PALBOCICLIB
     Dosage: UNK
  6. IBRANCE [Suspect]
     Active Substance: PALBOCICLIB
     Dosage: 100 MG
  7. ARIMIDEX [Concomitant]
     Active Substance: ANASTROZOLE
     Dosage: UNK
     Dates: start: 2019

REACTIONS (9)
  - Full blood count decreased [Recovered/Resolved]
  - COVID-19 [Recovered/Resolved]
  - Fracture [Unknown]
  - Cytopenia [Unknown]
  - Neoplasm progression [Unknown]
  - Fatigue [Unknown]
  - Headache [Unknown]
  - Sinusitis [Unknown]
  - Malaise [Unknown]
